FAERS Safety Report 25900425 (Version 1)
Quarter: 2025Q4

REPORT INFORMATION
  Report Type: Spontaneous
  Country: US (occurrence: None)
  Receive Date: 20251008
  Receipt Date: 20251008
  Transmission Date: 20260117
  Serious: Yes (Death)
  Sender: FDA-CTU
  Company Number: None

PATIENT
  Age: 78 Year
  Sex: Female

DRUGS (10)
  1. TADALAFIL [Suspect]
     Active Substance: TADALAFIL
     Indication: Pulmonary arterial hypertension
     Dosage: FREQUENCY : DAILY;?
     Route: 048
     Dates: start: 20191017
  2. ADCIRCA [Concomitant]
     Active Substance: TADALAFIL
  3. ASPIRIN CHW 81MG [Concomitant]
  4. IRON TAB 65MG [Concomitant]
  5. LORATADINE TAB 10MG [Concomitant]
  6. OMEGA-3 FISH CAP 300MG [Concomitant]
  7. VALSARTAN [Concomitant]
     Active Substance: VALSARTAN
  8. VITAMIN B12 TAB 100MCG [Concomitant]
  9. VITAMIN D3 [Concomitant]
     Active Substance: CHOLECALCIFEROL
  10. WAL-ZYR TAB 10MG [Concomitant]

REACTIONS (1)
  - Pulmonary arterial hypertension [None]

NARRATIVE: CASE EVENT DATE: 20250910
